FAERS Safety Report 23663380 (Version 2)
Quarter: 2024Q1

REPORT INFORMATION
  Report Type: Report from Study
  Country: US (occurrence: US)
  Receive Date: 20240322
  Receipt Date: 20240328
  Transmission Date: 20240410
  Serious: No
  Sender: FDA-Public Use
  Company Number: US-TAIHOP-2024-002584

PATIENT
  Age: 66 Year
  Sex: Female
  Weight: 61.69 kg

DRUGS (1)
  1. LYTGOBI [Suspect]
     Active Substance: FUTIBATINIB
     Indication: Cholangiocarcinoma
     Route: 048
     Dates: start: 20240220

REACTIONS (9)
  - Hyperchlorhydria [Unknown]
  - Product physical issue [Unknown]
  - Product packaging difficult to open [Unknown]
  - Dry eye [Unknown]
  - Dry mouth [Unknown]
  - Alopecia [Unknown]
  - Taste disorder [Unknown]
  - Nausea [Unknown]
  - Blood magnesium decreased [Unknown]
